FAERS Safety Report 14039549 (Version 1)
Quarter: 2017Q4

REPORT INFORMATION
  Report Type: Spontaneous
  Country: US (occurrence: US)
  Receive Date: 20171004
  Receipt Date: 20171004
  Transmission Date: 20180321
  Serious: Yes (Hospitalization, Other)
  Sender: FDA-Public Use
  Company Number: US-GLAXOSMITHKLINE-US2017GSK152980

PATIENT
  Age: 65 Year
  Sex: Female

DRUGS (1)
  1. SORIATANE [Suspect]
     Active Substance: ACITRETIN
     Indication: PSORIASIS
     Dosage: 17.5 MG, UNK
     Dates: start: 2016

REACTIONS (3)
  - Gait disturbance [Unknown]
  - Knee arthroplasty [Unknown]
  - Arthralgia [Unknown]

NARRATIVE: CASE EVENT DATE: 20170825
